FAERS Safety Report 6481528-X (Version None)
Quarter: 2009Q4

REPORT INFORMATION
  Report Type: 
  Country: None (occurrence: None)
  Receive Date: 20091123
  Receipt Date: 20090806
  Transmission Date: 20100525
  Serious: No
  Sender: FDA-Public Use
  Company Number: 8048362

PATIENT
  Age: 44 Year
  Sex: Female
  Weight: 68.1 kg

DRUGS (6)
  1. CIMZIA [Suspect]
     Dosage: 400 MG
     Dates: start: 20090226
  2. PENTASA [Concomitant]
  3. HYOSCYAMINE [Concomitant]
  4. HYDROCHLOROTHIAZIDE [Concomitant]
  5. LISINOPRIL [Concomitant]
  6. ALIGN [Concomitant]

REACTIONS (5)
  - ALOPECIA [None]
  - ARTHRALGIA [None]
  - CONTUSION [None]
  - FATIGUE [None]
  - LETHARGY [None]
